FAERS Safety Report 9528529 (Version 1)
Quarter: 2013Q1

REPORT INFORMATION
  Report Type: Spontaneous
  Country: US (occurrence: None)
  Receive Date: 20130329
  Receipt Date: 20130329
  Transmission Date: 20140127
  Serious: No
  Sender: FDA-Public Use
  Company Number: 1000042797

PATIENT
  Age: 42 Year
  Sex: Female

DRUGS (1)
  1. LINZESS (LINACLOTIDE) (CAPSULES) [Suspect]
     Dosage: 290MCG (290 MCG, 1 IN 1D) ORAL
     Route: 048
     Dates: start: 201302, end: 201302

REACTIONS (1)
  - Alopecia [None]
